FAERS Safety Report 5149494-7 (Version None)
Quarter: 2006Q4

REPORT INFORMATION
  Report Type: 
  Country: None (occurrence: None)
  Receive Date: 20061113
  Receipt Date: 20060203
  Transmission Date: 20070319
  Serious: No
  Sender: FDA-Public Use
  Company Number: 437012

PATIENT
  Sex: Female

DRUGS (4)
  1. COREG [Suspect]
     Indication: HEART RATE
     Route: 048
     Dates: start: 20051101
  2. ALTACE [Concomitant]
     Indication: DRUG USE FOR UNKNOWN INDICATION
     Dosage: 20MG TWICE PER DAY
     Route: 048
  3. HYDROCHLOROTHIAZIDE [Concomitant]
     Indication: DRUG USE FOR UNKNOWN INDICATION
     Dosage: 25MG PER DAY
     Route: 048
  4. NITROGLYCERIN [Concomitant]
     Indication: DRUG USE FOR UNKNOWN INDICATION
     Route: 062

REACTIONS (2)
  - BLOOD PRESSURE INADEQUATELY CONTROLLED [None]
  - DRUG INEFFECTIVE [None]
